FAERS Safety Report 5566837-0 (Version None)
Quarter: 2007Q4

REPORT INFORMATION
  Report Type: 
  Country: None (occurrence: None)
  Receive Date: 20071219
  Receipt Date: 20071213
  Transmission Date: 20080405
  Serious: Yes (Life-Threatening, Hospitalization)
  Sender: FDA-Public Use
  Company Number: D0055279A

PATIENT
  Age: 71 Year
  Sex: Male
  Weight: 82 kg

DRUGS (8)
  1. ELONTRIL [Suspect]
     Dosage: 150MG PER DAY
     Route: 048
     Dates: start: 20070101
  2. NIFEDIPINE [Concomitant]
     Route: 065
  3. DEXIUM [Concomitant]
     Route: 048
  4. PANTOPRAZOLE SODIUM [Concomitant]
     Dosage: 20MG PER DAY
     Route: 048
  5. DILZEM [Concomitant]
     Indication: HYPERTENSION
     Dosage: 180MG TWICE PER DAY
     Route: 048
  6. CIPRALEX [Concomitant]
     Indication: DEPRESSION
     Dosage: 20MG PER DAY
     Route: 048
     Dates: start: 20060201
  7. SEROQUEL [Concomitant]
     Indication: DEPRESSION
     Dosage: 150MG PER DAY
     Route: 048
     Dates: start: 20060201
  8. DOXEPIN HCL [Concomitant]
     Indication: DEPRESSION
     Dosage: 40DROP SINGLE DOSE
     Route: 048
     Dates: start: 20071119, end: 20071119

REACTIONS (4)
  - ABDOMINAL PAIN UPPER [None]
  - ACUTE MYOCARDIAL INFARCTION [None]
  - CHEST PAIN [None]
  - MYOCARDIAL INFARCTION [None]
